FAERS Safety Report 9139438 (Version 1)
Quarter: 2013Q1

REPORT INFORMATION
  Report Type: Spontaneous
  Country: US (occurrence: US)
  Receive Date: 20130305
  Receipt Date: 20130305
  Transmission Date: 20140127
  Serious: Yes (Other)
  Sender: FDA-Public Use
  Company Number: US-ELI_LILLY_AND_COMPANY-US201302009353

PATIENT
  Age: 83 Year
  Sex: Female

DRUGS (2)
  1. HUMALOG LISPRO [Suspect]
     Dosage: UNK UNK, UNKNOWN
     Dates: start: 2005
  2. LANTUS [Concomitant]
     Indication: TYPE 2 DIABETES MELLITUS
     Dosage: 4 U, EACH EVENING
     Route: 058
     Dates: start: 2005

REACTIONS (2)
  - Post procedural infection [Unknown]
  - Gait disturbance [Unknown]
